FAERS Safety Report 9681171 (Version 1)
Quarter: 2013Q4

REPORT INFORMATION
  Report Type: Spontaneous
  Country: JP (occurrence: JP)
  Receive Date: 20131111
  Receipt Date: 20131111
  Transmission Date: 20140711
  Serious: Yes (Hospitalization)
  Sender: FDA-Public Use
  Company Number: JP-PERRIGO-13JP011298

PATIENT
  Age: 66 Year
  Sex: Male

DRUGS (1)
  1. SODIUM POLYSTYRENE SULFONATE [Suspect]
     Indication: PRODUCT USED FOR UNKNOWN INDICATION
     Dosage: UNK, UNK
     Route: 048

REACTIONS (4)
  - Hypokalaemic syndrome [Recovering/Resolving]
  - Abdominal pain [Recovering/Resolving]
  - Muscular weakness [Recovering/Resolving]
  - Constipation [Recovering/Resolving]
